FAERS Safety Report 6702879-7 (Version None)
Quarter: 2010Q2

REPORT INFORMATION
  Report Type: 
  Country: None (occurrence: None)
  Receive Date: 20100429
  Receipt Date: 20100416
  Transmission Date: 20101027
  Serious: Yes (Other)
  Sender: FDA-Public Use
  Company Number: US-ELI_LILLY_AND_COMPANY-US201004005074

PATIENT
  Age: 48 Year
  Sex: Female
  Weight: 134.1 kg

DRUGS (9)
  1. CYMBALTA [Suspect]
     Indication: FIBROMYALGIA
     Dosage: 60 MG, DAILY (1/D)
     Dates: start: 20090401, end: 20090701
  2. CYMBALTA [Suspect]
     Dosage: 60 MG, 2/D
     Dates: start: 20090701, end: 20100301
  3. METOPROLOL [Concomitant]
     Indication: HYPERTENSION
     Dosage: 50 MG, DAILY (1/D)
  4. HYDROCHLORZIDE [Concomitant]
     Indication: HYPERTENSION
     Dosage: 50 MG, DAILY (1/D)
  5. CELECOXIB [Concomitant]
     Indication: ARTHRALGIA
     Dosage: 200 MG, DAILY (1/D)
     Dates: start: 20090101
  6. CELECOXIB [Concomitant]
     Dosage: 200 MG, 2/D
     Dates: end: 20100301
  7. CELECOXIB [Concomitant]
     Dosage: 200 MG, 2/D
     Dates: start: 20100401
  8. GABAPENTIN [Concomitant]
     Indication: NERVOUS SYSTEM DISORDER
     Dosage: 300 MG, 3/D
  9. GABAPENTIN [Concomitant]
     Dosage: 600 MG, 2/D

REACTIONS (6)
  - APATHY [None]
  - BLOOD PRESSURE DIASTOLIC INCREASED [None]
  - DEPRESSION [None]
  - DRUG INEFFECTIVE [None]
  - SLEEP DISORDER [None]
  - SOMNOLENCE [None]
